FAERS Safety Report 9440410 (Version 1)
Quarter: 2013Q3

REPORT INFORMATION
  Report Type: Spontaneous
  Country: US (occurrence: US)
  Receive Date: 20130805
  Receipt Date: 20130805
  Transmission Date: 20140515
  Serious: Yes (Hospitalization)
  Sender: FDA-Public Use
  Company Number: US-BAYER-2013-092083

PATIENT
  Age: 56 Year
  Sex: Female
  Weight: 95.24 kg

DRUGS (7)
  1. BETASERON [Suspect]
     Dosage: 0.25 MG, QOD
     Route: 058
  2. GABAPENTIN [Concomitant]
     Dosage: 100 MG, UNK
  3. NEXIUM [Concomitant]
     Dosage: 20 MG, UNK
  4. LORATA-DINE D [LORATADINE,PSEUDOEPHEDRINE HYDROCHLORIDE] [Concomitant]
  5. MELOXICAM [Concomitant]
     Dosage: 15 MG, UNK
  6. HYDROCHLOROTHIAZID [Concomitant]
     Dosage: 12.5 MG, UNK
  7. MICARDIS [Concomitant]
     Dosage: 20 MG, UNK

REACTIONS (7)
  - Asthma [Recovering/Resolving]
  - Breath sounds abnormal [Recovering/Resolving]
  - Dyspnoea [Recovering/Resolving]
  - Visual impairment [Unknown]
  - Hyperaesthesia [None]
  - Paraesthesia [Unknown]
  - Memory impairment [Unknown]
